FAERS Safety Report 6644751-7 (Version None)
Quarter: 2010Q1

REPORT INFORMATION
  Report Type: 
  Country: None (occurrence: None)
  Receive Date: 20100318
  Receipt Date: 20100318
  Transmission Date: 20100710
  Serious: Yes (Hospitalization)
  Sender: FDA-Public Use
  Company Number: None

PATIENT
  Age: 66 Year
  Sex: Male

DRUGS (2)
  1. ASPIRIN [Suspect]
     Indication: CORONARY ARTERIAL STENT INSERTION
     Dosage: 81 MG EVERY DAY2 PO
     Route: 048
     Dates: start: 20060214
  2. CLOPIDOGREL [Suspect]
     Indication: CORONARY ARTERIAL STENT INSERTION
     Dosage: 75 MG EVERY DAY PO
     Route: 048
     Dates: start: 20060214, end: 20090320

REACTIONS (3)
  - DUODENITIS [None]
  - GASTRITIS EROSIVE [None]
  - GASTROINTESTINAL HAEMORRHAGE [None]
